FAERS Safety Report 6699013-9 (Version None)
Quarter: 2010Q2

REPORT INFORMATION
  Report Type: 
  Country: None (occurrence: None)
  Receive Date: 20100427
  Receipt Date: 20100410
  Transmission Date: 20101027
  Serious: Yes (Hospitalization)
  Sender: FDA-Public Use
  Company Number: DE-ROCHE-698905

PATIENT
  Sex: Male
  Weight: 75 kg

DRUGS (7)
  1. BEVACIZUMAB [Suspect]
     Dosage: FREQUENCY: DAILY QD 14.
     Route: 042
     Dates: start: 20080709
  2. IRINOTECAN HYDROCHLORIDE [Suspect]
     Dosage: FREQUENCY DAILY:QD 14
     Route: 042
     Dates: start: 20080710
  3. FLUOROURACIL [Suspect]
     Dosage: FREQUENCY: DAILY:QD 14
     Route: 042
     Dates: start: 20080710
  4. FOLINIC ACID [Suspect]
     Dosage: FREQUENCY: QD 14,
     Route: 042
     Dates: start: 20080710
  5. KEVATRIL [Concomitant]
     Dates: start: 20080711, end: 20080712
  6. FORTECORTIN [Concomitant]
     Dates: start: 20080711, end: 20080712
  7. EMEND [Concomitant]
     Dates: start: 20080711, end: 20080712

REACTIONS (1)
  - PARAESTHESIA [None]
